FAERS Safety Report 6409054-4 (Version None)
Quarter: 2009Q4

REPORT INFORMATION
  Report Type: 
  Country: None (occurrence: None)
  Receive Date: 20091021
  Receipt Date: 20091016
  Transmission Date: 20100525
  Serious: Yes (Death, Other)
  Sender: FDA-Public Use
  Company Number: GB-WYE-G03825509

PATIENT
  Sex: Female

DRUGS (5)
  1. EFFEXOR XR [Suspect]
     Route: 048
     Dates: start: 20040101
  2. EFFEXOR XR [Suspect]
     Route: 048
  3. ATENOLOL [Concomitant]
     Dosage: UNKNOWN
     Route: 048
     Dates: start: 20080101
  4. VALPROATE SODIUM [Concomitant]
     Indication: CONVULSION
     Dosage: UNKNOWN
     Dates: start: 20080101
  5. CLOZARIL [Suspect]
     Indication: SCHIZOPHRENIA
     Dosage: UNSPECIFIED INITIAL DOSE INCREASED TO 650 MG IN MAY 2009

REACTIONS (3)
  - CIRCULATORY COLLAPSE [None]
  - CONVULSION [None]
  - DRUG TOXICITY [None]
